FAERS Safety Report 11744353 (Version 1)
Quarter: 2015Q4

REPORT INFORMATION
  Report Type: Spontaneous
  Country: US (occurrence: US)
  Receive Date: 20151116
  Receipt Date: 20151116
  Transmission Date: 20160304
  Serious: No
  Sender: FDA-Public Use
  Company Number: US-LPDUSPRD-20150594

PATIENT

DRUGS (1)
  1. INJECTAFER [Suspect]
     Active Substance: FERRIC CARBOXYMALTOSE
     Route: 065

REACTIONS (2)
  - Arthralgia [Recovered/Resolved]
  - Flushing [Recovered/Resolved]
